FAERS Safety Report 7421137-9 (Version None)
Quarter: 2011Q2

REPORT INFORMATION
  Report Type: 
  Country: None (occurrence: None)
  Receive Date: 20110418
  Receipt Date: 20110412
  Transmission Date: 20111010
  Serious: Yes (Death, Other)
  Sender: FDA-Public Use
  Company Number: US-GENZYME-FLUD-1001076

PATIENT
  Age: 41 Year
  Sex: Female

DRUGS (9)
  1. CYCLOPHOSPHAMIDE [Suspect]
     Indication: CORD BLOOD TRANSPLANT THERAPY
     Dosage: 4800 MG/M2, UNK
     Route: 065
  2. MICAFUNGIN [Concomitant]
     Indication: OPPORTUNISTIC INFECTION PROPHYLAXIS
     Route: 065
  3. TACROLIMUS [Concomitant]
     Indication: PROPHYLAXIS AGAINST GRAFT VERSUS HOST DISEASE
     Route: 065
  4. FLUDARA [Suspect]
     Indication: CORD BLOOD TRANSPLANT THERAPY
     Dosage: 120 MG/M2, UNK
     Route: 065
  5. CEFTAZIDIME [Concomitant]
     Indication: OPPORTUNISTIC INFECTION PROPHYLAXIS
     Route: 065
  6. FLUDARA [Suspect]
     Indication: HODGKIN'S DISEASE
  7. CYCLOPHOSPHAMIDE [Suspect]
     Indication: HODGKIN'S DISEASE
  8. SIROLIMUS [Concomitant]
     Indication: PROPHYLAXIS AGAINST GRAFT VERSUS HOST DISEASE
     Route: 065
  9. ACYCLOVIR [Concomitant]
     Indication: OPPORTUNISTIC INFECTION PROPHYLAXIS
     Route: 065

REACTIONS (11)
  - CEREBRAL FUNGAL INFECTION [None]
  - DELAYED ENGRAFTMENT [None]
  - THROMBOCYTOPENIA [None]
  - ESCHERICHIA INFECTION [None]
  - ANGIOEDEMA [None]
  - PULMONARY OEDEMA [None]
  - RENAL FAILURE ACUTE [None]
  - LOWER RESPIRATORY TRACT INFECTION FUNGAL [None]
  - EXTRADURAL HAEMATOMA [None]
  - CARDIOGENIC SHOCK [None]
  - NEUTROPENIA [None]
